FAERS Safety Report 6517792-8 (Version None)
Quarter: 2009Q4

REPORT INFORMATION
  Report Type: 
  Country: None (occurrence: None)
  Receive Date: 20091224
  Receipt Date: 20091221
  Transmission Date: 20100525
  Serious: Yes (Death, Other)
  Sender: FDA-Public Use
  Company Number: TR-ELI_LILLY_AND_COMPANY-TR200910001664

PATIENT
  Age: 67 Year
  Sex: Male

DRUGS (5)
  1. HUMULIN R [Suspect]
     Indication: DIABETES MELLITUS
     Dosage: 24 IU, 2/D
     Route: 058
     Dates: start: 20090819
  2. HUMULIN N [Suspect]
     Indication: DIABETES MELLITUS
     Dosage: 18 IU, 2/D
     Route: 058
     Dates: start: 20090819
  3. ANTIHYPERTENSIVES [Concomitant]
     Indication: HYPERTENSION
  4. ANALGESICS [Concomitant]
  5. ANTIBIOTICS [Concomitant]

REACTIONS (1)
  - MYOCARDIAL INFARCTION [None]
